FAERS Safety Report 9837281 (Version 2)
Quarter: 2014Q2

REPORT INFORMATION
  Report Type: Spontaneous
  Country: US (occurrence: None)
  Receive Date: 20131205
  Receipt Date: 20140416
  Transmission Date: 20141212
  Serious: No
  Sender: FDA-Public Use
  Company Number: 163-POMAL-13093591

PATIENT
  Age: 75 Year
  Sex: Male
  Weight: 79.4 kg

DRUGS (11)
  1. POMALYST [Suspect]
     Indication: PLASMA CELL MYELOMA
     Dosage: 4MG, 21 IN 21 D, PO
     Route: 048
     Dates: start: 20130729
  2. ALLOPURINOL (ALLOPURINOL) (TABLET) [Concomitant]
  3. TIMOLOL MALEATE (TIMOLOL MALEATE) (TABLETS) [Concomitant]
  4. CALCIUM ACETATE (CALCIUM ACETATE) CAPSULES [Concomitant]
  5. WARFARIN SODIUM (WARFARNI SODIUM) (CAPSULES) [Concomitant]
  6. ASPIRIN (ACETYLSALICYLIC ACID) (ENTERIC-COATED TABLET) [Concomitant]
  7. FIBER THERAPY (PLANTAGO PSYLLIUM) (CAPSULES) [Concomitant]
  8. VALACYCLOVIR HCL (VALACICLOVIR HYDROCHLORIDE) (TABLET) [Concomitant]
  9. DEXAMETHASONE (DEXAMETHASONE) (TABLETS) [Concomitant]
  10. SIMVASTATIN (SIMVASTATIN) (TABLETS) [Concomitant]
  11. DICLOFENAC SODIUM EC (DICLOFENAC SODIUM) (TABLETS) [Concomitant]

REACTIONS (7)
  - Malaise [None]
  - Arthralgia [None]
  - Weight increased [None]
  - Tremor [None]
  - Body temperature increased [None]
  - Nervousness [None]
  - Constipation [None]
